FAERS Safety Report 25509862 (Version 1)
Quarter: 2025Q3

REPORT INFORMATION
  Report Type: Spontaneous
  Country: US (occurrence: US)
  Receive Date: 20250703
  Receipt Date: 20250703
  Transmission Date: 20251021
  Serious: No
  Sender: RADIUS PHARM
  Company Number: US-RADIUS HEALTH INC.-2024US000397

PATIENT
  Sex: Female

DRUGS (3)
  1. TYMLOS [Suspect]
     Active Substance: ABALOPARATIDE
     Indication: Senile osteoporosis
     Route: 058
  2. TYMLOS [Suspect]
     Active Substance: ABALOPARATIDE
     Route: 058
     Dates: start: 20231228
  3. INSULIN NOS [Concomitant]
     Active Substance: INSULIN NOS
     Indication: Product used for unknown indication

REACTIONS (17)
  - Intentional dose omission [Not Recovered/Not Resolved]
  - Heart sounds abnormal [Unknown]
  - Pain in extremity [Unknown]
  - Dizziness [Unknown]
  - Constipation [Unknown]
  - Nausea [Unknown]
  - Intentional product misuse [Unknown]
  - Vestibular migraine [Unknown]
  - Gait disturbance [Unknown]
  - Chest discomfort [Unknown]
  - Palpitations [Unknown]
  - Faeces discoloured [Unknown]
  - Blood glucose increased [Unknown]
  - Foot fracture [Unknown]
  - Vestibular neuronitis [Unknown]
  - Injection site pain [Unknown]
  - Sensory disturbance [Unknown]
